FAERS Safety Report 7149718-0 (Version None)
Quarter: 2010Q4

REPORT INFORMATION
  Report Type: 
  Country: None (occurrence: None)
  Receive Date: 20101210
  Receipt Date: 20101201
  Transmission Date: 20110411
  Serious: Yes (Hospitalization)
  Sender: FDA-Public Use
  Company Number: US-BIOGENIDEC-2010BI040167

PATIENT
  Age: 50 Year
  Sex: Male
  Weight: 91 kg

DRUGS (1)
  1. TYSABRI [Suspect]
     Indication: MULTIPLE SCLEROSIS
     Route: 042
     Dates: start: 20071227

REACTIONS (8)
  - ABDOMINAL PAIN UPPER [None]
  - CAMPYLOBACTER INTESTINAL INFECTION [None]
  - CARDIAC ARREST [None]
  - CHOLELITHIASIS OBSTRUCTIVE [None]
  - FUNGAL OESOPHAGITIS [None]
  - MULTIPLE SCLEROSIS [None]
  - NEPHROLITHIASIS [None]
  - NEUROGENIC SHOCK [None]
